FAERS Safety Report 9421852 (Version 3)
Quarter: 2013Q4

REPORT INFORMATION
  Report Type: Spontaneous
  Country: DE (occurrence: DE)
  Receive Date: 20130726
  Receipt Date: 20131029
  Transmission Date: 20140711
  Serious: Yes (Hospitalization, Other)
  Sender: FDA-Public Use
  Company Number: DE-AMGEN-DEUSP2013051173

PATIENT
  Age: 74 Year
  Sex: Female

DRUGS (14)
  1. PROLIA [Suspect]
     Indication: OSTEOPOROSIS POSTMENOPAUSAL
     Dosage: UNK UNK, Q6MO
     Route: 058
     Dates: start: 20121015, end: 20130416
  2. MTX /00113801/ [Suspect]
     Indication: RHEUMATOID ARTHRITIS
     Dosage: 15 MG, QWK
     Route: 058
     Dates: start: 2006, end: 201303
  3. CONCOR [Concomitant]
     Dosage: 2.5 MG, UNK
  4. SPIRIVA [Concomitant]
     Dosage: 18 MUG, QD
  5. MCP                                /00041901/ [Concomitant]
  6. L THYROXINE [Concomitant]
     Dosage: 75 MUG, QD
  7. FOSTER                             /06206901/ [Concomitant]
     Dosage: 12 MUG, 2 X 1 PUFF
  8. NOVAMIN                            /00013301/ [Concomitant]
     Dosage: UNK UNK, AS NECESSARY
  9. PANTOPRAZOLE [Concomitant]
     Dosage: 40 MG, QD
  10. SPIRONOLACTONE [Concomitant]
     Dosage: UNK MG, UNK
  11. VIGANTOLETTEN [Concomitant]
     Dosage: 1000 IU, QD
  12. FOLIC ACID [Concomitant]
     Dosage: 5 MG, QWK
  13. IBUPROFEN [Concomitant]
     Dosage: 400 MG, AS NECESSARY
  14. UNAT                               /01036501/ [Concomitant]

REACTIONS (26)
  - Hepatic cirrhosis [Unknown]
  - Ascites [Recovering/Resolving]
  - Carbohydrate antigen 125 increased [Recovering/Resolving]
  - Drug-induced liver injury [Unknown]
  - Dyspnoea [Unknown]
  - Fibrin D dimer increased [Unknown]
  - Gastrointestinal infection [Unknown]
  - Portal hypertension [Unknown]
  - Hypoventilation [Unknown]
  - Splenomegaly [Unknown]
  - Malignant neoplasm of unknown primary site [Unknown]
  - Peritoneal adhesions [Unknown]
  - Intraductal papillary mucinous neoplasm [Unknown]
  - Dilatation intrahepatic duct acquired [Unknown]
  - Emphysema [Unknown]
  - Benign breast neoplasm [Unknown]
  - Oedema peripheral [Unknown]
  - Nasopharyngitis [Unknown]
  - Rhinorrhoea [Recovered/Resolved]
  - Diarrhoea [Unknown]
  - Cyst [Unknown]
  - Abdominal tenderness [Unknown]
  - Weight decreased [Unknown]
  - Hypothyroidism [Unknown]
  - Hypoalbuminaemia [Unknown]
  - Asthenia [Unknown]
